FAERS Safety Report 6163848-1 (Version None)
Quarter: 2009Q2

REPORT INFORMATION
  Report Type: 
  Country: None (occurrence: None)
  Receive Date: 20090422
  Receipt Date: 20090413
  Transmission Date: 20091009
  Serious: Yes (Life-Threatening, Other)
  Sender: FDA-Public Use
  Company Number: US-BAXTER-2009BH005996

PATIENT
  Sex: Female

DRUGS (1)
  1. AMINO ACIDS NOS AND ELECTROLYTES NOS [Suspect]
     Indication: MALNUTRITION
     Route: 042
     Dates: start: 20090401, end: 20090415

REACTIONS (4)
  - CARDIO-RESPIRATORY ARREST [None]
  - CATHETER RELATED COMPLICATION [None]
  - RESPIRATORY DISTRESS [None]
  - VENTRICULAR TACHYCARDIA [None]
